FAERS Safety Report 4758878-8 (Version None)
Quarter: 2005Q3

REPORT INFORMATION
  Report Type: 
  Country: None (occurrence: None)
  Receive Date: 20050831
  Receipt Date: 20050812
  Transmission Date: 20060218
  Serious: Yes (Death)
  Sender: FDA-Public Use
  Company Number: 05-08-1385

PATIENT
  Age: 51 Year
  Sex: Female

DRUGS (1)
  1. CLOZAPINE [Suspect]
     Indication: SCHIZOAFFECTIVE DISORDER
     Dosage: 600-700MG QD ORAL
     Route: 048
     Dates: start: 20000701, end: 20050401

REACTIONS (2)
  - ANOXIC ENCEPHALOPATHY [None]
  - ASPIRATION [None]
